FAERS Safety Report 10048225 (Version 2)
Quarter: 2014Q2

REPORT INFORMATION
  Report Type: Report from Study
  Country: US (occurrence: US)
  Receive Date: 20140331
  Receipt Date: 20140416
  Transmission Date: 20141212
  Serious: Yes (Other)
  Sender: FDA-Public Use
  Company Number: US-ACTELION-A-NJ2014-96523

PATIENT
  Age: 68 Year
  Sex: Male

DRUGS (3)
  1. TRACLEER [Suspect]
     Indication: PULMONARY ARTERIAL HYPERTENSION
     Dosage: 125 MG, UNK
     Route: 048
     Dates: start: 20131025
  2. TRACLEER [Suspect]
     Dosage: 62.5 MG, BID
     Route: 048
     Dates: start: 20130923, end: 20131024
  3. ADCIRCA [Concomitant]

REACTIONS (4)
  - Bronchospasm [Recovering/Resolving]
  - Heart rate irregular [Recovering/Resolving]
  - Loss of consciousness [Recovering/Resolving]
  - Cough [Recovering/Resolving]
